FAERS Safety Report 23654078 (Version 1)
Quarter: 2024Q1

REPORT INFORMATION
  Report Type: Spontaneous
  Country: US (occurrence: US)
  Receive Date: 20240320
  Receipt Date: 20240320
  Transmission Date: 20240409
  Serious: Yes (Other)
  Sender: FDA-Public Use
  Company Number: US-BIOVITRUM-2024-US-004284

PATIENT
  Age: 62 Year
  Sex: Female

DRUGS (1)
  1. VONJO [Suspect]
     Active Substance: PACRITINIB
     Indication: Product used for unknown indication
     Dosage: TWICE DAILY
     Route: 048
     Dates: start: 202202

REACTIONS (2)
  - Pneumonia [Unknown]
  - Cardiomegaly [Unknown]
